FAERS Safety Report 7821858-X (Version None)
Quarter: 2011Q4

REPORT INFORMATION
  Report Type: 
  Country: None (occurrence: None)
  Receive Date: 20111018
  Receipt Date: 20100929
  Transmission Date: 20120403
  Serious: No
  Sender: FDA-Public Use
  Company Number: PR-ASTRAZENECA-2010SE45923

PATIENT
  Age: 84 Year
  Sex: Female

DRUGS (1)
  1. SYMBICORT [Suspect]
     Dosage: 50 MG
     Route: 048

REACTIONS (2)
  - INCORRECT ROUTE OF DRUG ADMINISTRATION [None]
  - ABDOMINAL DISCOMFORT [None]
